FAERS Safety Report 21090802 (Version 1)
Quarter: 2022Q3

REPORT INFORMATION
  Report Type: Spontaneous
  Country: US (occurrence: US)
  Receive Date: 20220716
  Receipt Date: 20220716
  Transmission Date: 20221027
  Serious: No
  Sender: FDA-Public Use
  Company Number: US-SA-SAC20220714000843

PATIENT
  Sex: Female

DRUGS (1)
  1. DUPIXENT [Suspect]
     Active Substance: DUPILUMAB
     Indication: Asthma
     Dosage: 300 MG/2ML;QOW
     Route: 058
     Dates: start: 20210204

REACTIONS (3)
  - Dry eye [Not Recovered/Not Resolved]
  - Product dose omission issue [Unknown]
  - Impaired quality of life [Not Recovered/Not Resolved]
